FAERS Safety Report 10970952 (Version 1)
Quarter: 2015Q1

REPORT INFORMATION
  Report Type: Spontaneous
  Country: US (occurrence: None)
  Receive Date: 20150226
  Receipt Date: 20150226
  Transmission Date: 20150721
  Serious: No
  Sender: FDA-Public Use
  Company Number: TPA2010A02049

PATIENT
  Age: 04 Decade
  Sex: Male

DRUGS (2)
  1. ULORIC [Suspect]
     Active Substance: FEBUXOSTAT
     Indication: GOUT
     Route: 048
     Dates: end: 201003
  2. SIMVASTATIN (SIMVASTATIN) [Suspect]
     Active Substance: SIMVASTATIN

REACTIONS (2)
  - Muscle spasms [None]
  - Blood creatine phosphokinase increased [None]
